FAERS Safety Report 24376249 (Version 1)
Quarter: 2024Q3

REPORT INFORMATION
  Report Type: Spontaneous
  Country: US (occurrence: None)
  Receive Date: 20240927
  Receipt Date: 20240927
  Transmission Date: 20241016
  Serious: Yes (Hospitalization)
  Sender: Public
  Company Number: None

PATIENT
  Sex: Male

DRUGS (6)
  1. NEUPOGEN [Suspect]
     Active Substance: FILGRASTIM
     Indication: Acute lymphocytic leukaemia
     Dosage: 480 MCG DAILY FOR 7 DAYS SC
     Route: 058
     Dates: start: 202408
  2. SOLIRIS [Suspect]
     Active Substance: ECULIZUMAB
     Indication: Haemolytic uraemic syndrome
  3. SOLIRIS SDV [Concomitant]
  4. SOD CHLOR POSIFLUSH (10ML) [Concomitant]
  5. EPINEPHRINE AUTO-INJ [Concomitant]
  6. SOLIRIS SDV [Concomitant]

REACTIONS (1)
  - Infection [None]
